FAERS Safety Report 25269442 (Version 1)
Quarter: 2025Q2

REPORT INFORMATION
  Report Type: Spontaneous
  Country: US (occurrence: None)
  Receive Date: 20250505
  Receipt Date: 20250505
  Transmission Date: 20250716
  Serious: No
  Sender: FDA-CTU
  Company Number: None

PATIENT
  Age: 23 Year
  Sex: Male
  Weight: 60.75 kg

DRUGS (1)
  1. VENLAFAXINE [Suspect]
     Active Substance: VENLAFAXINE HYDROCHLORIDE
     Indication: Depression
     Route: 048
     Dates: start: 20240109, end: 20240724

REACTIONS (4)
  - Sexual dysfunction [None]
  - Erectile dysfunction [None]
  - Quality of life decreased [None]
  - Anger [None]

NARRATIVE: CASE EVENT DATE: 20240723
